FAERS Safety Report 8844155 (Version 1)
Quarter: 2012Q4

REPORT INFORMATION
  Report Type: 
  Country: KR (occurrence: KR)
  Receive Date: 20121017
  Receipt Date: 20121017
  Transmission Date: 20130627
  Serious: Yes (Hospitalization)
  Sender: FDA-Public Use
  Company Number: KR-PAR PHARMACEUTICAL, INC-2012SCPR004656

PATIENT

DRUGS (4)
  1. METRONIDAZOLE [Suspect]
     Indication: CHOLECYSTITIS ACUTE
     Dosage: UNK, Unknown
     Route: 065
  2. OSELTAMIVIR [Suspect]
     Indication: EVIDENCE BASED TREATMENT
     Dosage: UNK, Unknown
     Route: 065
  3. OSELTAMIVIR [Suspect]
     Indication: H1N1 INFLUENZA
  4. CEFOTAXIME [Suspect]
     Indication: CHOLECYSTITIS ACUTE
     Dosage: UNK, Unknown
     Route: 065

REACTIONS (4)
  - Drug reaction with eosinophilia and systemic symptoms [Recovering/Resolving]
  - Disease recurrence [Recovering/Resolving]
  - Azotaemia [Recovering/Resolving]
  - Hepatitis cholestatic [Recovering/Resolving]
